FAERS Safety Report 9697502 (Version 4)
Quarter: 2014Q1

REPORT INFORMATION
  Report Type: Report from Study
  Country: IS (occurrence: IS)
  Receive Date: 20131120
  Receipt Date: 20140206
  Transmission Date: 20141002
  Serious: Yes (Hospitalization)
  Sender: FDA-Public Use
  Company Number: IS-MPIJNJ-2013JNJ001023

PATIENT
  Sex: 0

DRUGS (5)
  1. VELCADE [Suspect]
     Indication: PLASMA CELL MYELOMA
     Dosage: 1.3 MG/M2, UNK
     Route: 058
     Dates: start: 20131028, end: 20131104
  2. CYCLOPHOSPHAMIDE [Suspect]
     Indication: PLASMA CELL MYELOMA
     Dosage: 500 MG/M2, UNK
     Route: 042
     Dates: start: 20131028, end: 20131104
  3. DEXAMETHASONE [Suspect]
     Indication: PLASMA CELL MYELOMA
     Dosage: 40 MG, UNK
     Route: 048
     Dates: start: 20131028, end: 20131104
  4. DEXAMETHASONE [Suspect]
     Dosage: 20 UNK, UNK
     Route: 048
  5. TRAMAL [Concomitant]
     Dosage: 50 MG, UNK

REACTIONS (1)
  - Pain [Recovered/Resolved with Sequelae]
